FAERS Safety Report 5561745-3 (Version None)
Quarter: 2007Q4

REPORT INFORMATION
  Report Type: 
  Country: None (occurrence: None)
  Receive Date: 20071215
  Receipt Date: 20071011
  Transmission Date: 20080405
  Serious: No
  Sender: FDA-Public Use
  Company Number: US-AMGEN-KDL246326

PATIENT
  Sex: Female
  Weight: 71.7 kg

DRUGS (2)
  1. ENBREL [Suspect]
     Indication: RHEUMATOID ARTHRITIS
     Route: 058
     Dates: start: 20070829
  2. METHOTREXATE [Concomitant]
     Route: 048
     Dates: start: 20070101

REACTIONS (8)
  - BACK PAIN [None]
  - BONE PAIN [None]
  - HYPOAESTHESIA [None]
  - INJECTION SITE REACTION [None]
  - MUSCULAR WEAKNESS [None]
  - NECK PAIN [None]
  - PARAESTHESIA [None]
  - STRESS [None]
